FAERS Safety Report 9999253 (Version 1)
Quarter: 2014Q1

REPORT INFORMATION
  Report Type: Spontaneous
  Country: US (occurrence: None)
  Receive Date: 20140311
  Receipt Date: 20140311
  Transmission Date: 20141002
  Serious: No
  Sender: FDA-Public Use
  Company Number: None

PATIENT
  Age: 45 Year
  Sex: Female
  Weight: 65.77 kg

DRUGS (1)
  1. MIRVASO 0.33% GALDERMA? [Suspect]
     Indication: ROSACEA
     Dosage: 1  ONCE DAILY APPLIED TO A SURFACE, USUALLY THE SKIN
     Route: 061
     Dates: start: 20131015, end: 20140309

REACTIONS (2)
  - Flushing [None]
  - Application site pain [None]
